FAERS Safety Report 7067352-8 (Version None)
Quarter: 2010Q4

REPORT INFORMATION
  Report Type: 
  Country: None (occurrence: None)
  Receive Date: 20101022
  Receipt Date: 20101022
  Transmission Date: 20110411
  Serious: Yes (Other)
  Sender: FDA-Public Use
  Company Number: None

PATIENT
  Age: 49 Year
  Sex: Male
  Weight: 99.7913 kg

DRUGS (1)
  1. ADENOSCAN 60MG/20ML -3MG/ML- ASTELLAS [Suspect]
     Indication: SCAN MYOCARDIAL PERFUSION
     Dosage: 69.7 MG ONCE IV
     Route: 042
     Dates: start: 20101019, end: 20101019

REACTIONS (4)
  - ALTERED STATE OF CONSCIOUSNESS [None]
  - INFUSION RELATED REACTION [None]
  - MEMORY IMPAIRMENT [None]
  - UNRESPONSIVE TO STIMULI [None]
